FAERS Safety Report 11528438 (Version 1)
Quarter: 2015Q3

REPORT INFORMATION
  Report Type: Spontaneous
  Country: US (occurrence: US)
  Receive Date: 20150921
  Receipt Date: 20150921
  Transmission Date: 20151125
  Serious: No
  Sender: FDA-Public Use
  Company Number: US-TEVA-543609USA

PATIENT
  Sex: Male

DRUGS (5)
  1. CLONAZEPAM. [Suspect]
     Active Substance: CLONAZEPAM
     Dosage: FORM OF ADMI UNKNOWN
  2. DEPAKOTE [Suspect]
     Active Substance: DIVALPROEX SODIUM
     Dosage: FORM OF ADMI UNKNOWN
  3. ZONEGRAN [Suspect]
     Active Substance: ZONISAMIDE
     Dosage: FORM OF ADMI UNKNOWN
  4. LAMICTAL [Suspect]
     Active Substance: LAMOTRIGINE
     Dosage: FORM OF ADMI UNKNOWN
  5. KEPPRA [Concomitant]
     Active Substance: LEVETIRACETAM

REACTIONS (3)
  - Mental disorder [Unknown]
  - Feeling abnormal [Unknown]
  - Mania [Unknown]
